FAERS Safety Report 7962775-4 (Version None)
Quarter: 2011Q4

REPORT INFORMATION
  Report Type: 
  Country: None (occurrence: None)
  Receive Date: 20111207
  Receipt Date: 20111130
  Transmission Date: 20120403
  Serious: Yes (Death)
  Sender: FDA-Public Use
  Company Number: CA-CELGENEUS-028-21880-11120066

PATIENT
  Sex: Male

DRUGS (20)
  1. COLACE [Concomitant]
     Route: 065
  2. SYMBICORT [Concomitant]
     Route: 065
  3. AMITRIPTYLINE HCL [Concomitant]
     Route: 065
  4. QUININE [Concomitant]
     Route: 065
  5. RABEPRAZOLE SODIUM [Concomitant]
     Route: 065
  6. ZYLOPRIM [Concomitant]
     Route: 065
  7. DECADRON [Concomitant]
     Route: 065
  8. PERINDOPRIL ERBUMINE [Concomitant]
     Route: 065
  9. SERAX [Concomitant]
     Route: 065
  10. D-TAB [Concomitant]
     Route: 065
  11. REVLIMID [Suspect]
     Indication: MULTIPLE MYELOMA
     Dosage: 10 MILLIGRAM
     Route: 048
     Dates: start: 20111117, end: 20111123
  12. AREDIA [Concomitant]
     Route: 065
  13. ACETAMINOPHEN [Concomitant]
     Route: 065
  14. SENOKOT [Concomitant]
     Route: 065
  15. LYRICA [Concomitant]
     Route: 065
  16. SIMVASTATIN [Concomitant]
     Route: 065
  17. CARDURA [Concomitant]
     Route: 065
  18. ALFUZOSIN HCL [Concomitant]
     Route: 065
  19. SPIRIVA [Concomitant]
     Route: 065
  20. ASPIRIN [Concomitant]
     Route: 065

REACTIONS (1)
  - DEATH [None]
